FAERS Safety Report 4852595-1 (Version None)
Quarter: 2005Q4

REPORT INFORMATION
  Report Type: 
  Country: None (occurrence: None)
  Receive Date: 20051125
  Receipt Date: 20050714
  Transmission Date: 20060501
  Serious: Yes (Other)
  Sender: FDA-Public Use
  Company Number: 2005103329

PATIENT
  Age: 77 Year
  Sex: Female

DRUGS (3)
  1. TIKOSYN [Suspect]
     Indication: ILL-DEFINED DISORDER
  2. HYDROCHLOROTHIAZIDE [Concomitant]
  3. GLYBURIDE [Concomitant]

REACTIONS (2)
  - BLOOD POTASSIUM DECREASED [None]
  - DYSPNOEA [None]
